FAERS Safety Report 4660590-0 (Version None)
Quarter: 2005Q2

REPORT INFORMATION
  Report Type: 
  Country: None (occurrence: None)
  Receive Date: 20050512
  Receipt Date: 20050502
  Transmission Date: 20051028
  Serious: Yes (Hospitalization)
  Sender: FDA-Public Use
  Company Number: 2005UW06713

PATIENT
  Sex: Female

DRUGS (10)
  1. CRESTOR [Suspect]
     Indication: BLOOD CHOLESTEROL INCREASED
  2. CLORAZEPATE DIPOTASSIUM [Concomitant]
  3. PAXIL [Concomitant]
  4. KEPPRA [Concomitant]
  5. RANITIDINE [Concomitant]
  6. NAPROXEN [Concomitant]
  7. GLUCOSAMINE/CHONDROITIN [Concomitant]
  8. ANTIOXIDANT [Concomitant]
  9. CALCIUM GLUCONATE [Concomitant]
  10. COUMADIN [Concomitant]

REACTIONS (4)
  - CONFUSIONAL STATE [None]
  - EPILEPSY [None]
  - HEADACHE [None]
  - NERVOUS SYSTEM DISORDER [None]
